FAERS Safety Report 5430044-2 (Version None)
Quarter: 2007Q3

REPORT INFORMATION
  Report Type: 
  Country: None (occurrence: None)
  Receive Date: 20070829
  Receipt Date: 20070817
  Transmission Date: 20080115
  Serious: Yes (Other)
  Sender: FDA-Public Use
  Company Number: US-PFIZER INC-2007069248

PATIENT
  Sex: Male
  Weight: 104.3 kg

DRUGS (14)
  1. CHANTIX [Suspect]
     Indication: SMOKING CESSATION THERAPY
     Route: 048
     Dates: start: 20070804, end: 20070816
  2. LIPITOR [Concomitant]
  3. RANITIDINE [Concomitant]
  4. PROTONIX [Concomitant]
  5. ALTACE [Concomitant]
  6. TOPROL-XL [Concomitant]
  7. ADVAIR DISKUS 100/50 [Concomitant]
  8. SPIRIVA [Concomitant]
  9. ALBUTEROL [Concomitant]
  10. CELEXA [Concomitant]
  11. ATIVAN [Concomitant]
  12. AMOXICILLIN [Concomitant]
  13. ALL OTHER THERAPEUTIC PRODUCTS [Concomitant]
  14. VICODIN [Concomitant]

REACTIONS (6)
  - CHOKING [None]
  - CHRONIC OBSTRUCTIVE PULMONARY DISEASE [None]
  - DIZZINESS [None]
  - PULMONARY HAEMORRHAGE [None]
  - RETCHING [None]
  - SMOKER [None]
